FAERS Safety Report 4356839-4 (Version None)
Quarter: 2004Q2

REPORT INFORMATION
  Report Type: 
  Country: None (occurrence: None)
  Receive Date: 20040507
  Receipt Date: 20040428
  Transmission Date: 20050107
  Serious: Yes (Other)
  Sender: FDA-Public Use
  Company Number: SE-SHR-04-024845

PATIENT
  Age: 53 Year
  Sex: Female

DRUGS (7)
  1. CAMPATH [Suspect]
     Indication: ANGIOIMMUNOBLASTIC T-CELL LYMPHOMA STAGE IV
     Dosage: SEE IMAGE
     Route: 042
  2. ACETAMINOPHEN [Concomitant]
  3. CLEMASTINE (CLEMASTINE) [Concomitant]
  4. BETAMETHASONE [Concomitant]
  5. SULFAMETHOXAZOLE + TRIMETHOPRIM [Concomitant]
  6. VALACYCLOVIR HCL [Concomitant]
  7. ALLOPURINOL TAB [Concomitant]

REACTIONS (4)
  - CYTOMEGALOVIRUS INFECTION [None]
  - DISEASE RECURRENCE [None]
  - HISTIOCYTOSIS HAEMATOPHAGIC [None]
  - PANCYTOPENIA [None]
